FAERS Safety Report 8130391-X (Version None)
Quarter: 2012Q1

REPORT INFORMATION
  Report Type: 
  Country: None (occurrence: None)
  Receive Date: 20120210
  Receipt Date: 20120210
  Transmission Date: 20120608
  Serious: Yes (Other)
  Sender: FDA-Public Use
  Company Number: PHHO2011US13387

PATIENT
  Sex: Female
  Weight: 97.506 kg

DRUGS (6)
  1. GILENYA [Suspect]
     Indication: MULTIPLE SCLEROSIS
     Dosage: 1.25 MG, UNK
     Dates: start: 20071128
  2. PREMARIN [Concomitant]
     Indication: HORMONE REPLACEMENT THERAPY
     Dosage: 0.3 MG, QD
     Dates: start: 20040701
  3. CYMBALTA [Concomitant]
     Indication: DEPRESSION
     Dosage: 60 MG, QD
     Dates: start: 20040901
  4. SYNTHROID [Concomitant]
     Indication: HYPOTHYROIDISM
     Dosage: 25 UG, QD
     Dates: start: 20080403
  5. GABAPENTIN [Concomitant]
     Indication: SENSORY DISTURBANCE
     Dosage: 300 MG, TID
     Dates: start: 20080722
  6. BACLOFEN [Concomitant]
     Indication: MUSCLE SPASTICITY
     Dosage: 10 MG, BID
     Dates: start: 20080812

REACTIONS (1)
  - CARCINOMA IN SITU OF SKIN [None]
